FAERS Safety Report 9834703 (Version 1)
Quarter: 2014Q1

REPORT INFORMATION
  Report Type: Spontaneous
  Country: CA (occurrence: CA)
  Receive Date: 20140122
  Receipt Date: 20140122
  Transmission Date: 20141002
  Serious: Yes (Other)
  Sender: FDA-Public Use
  Company Number: CA-ASTRAZENECA-2014SE03038

PATIENT
  Age: 61 Year
  Sex: Male
  Weight: 124 kg

DRUGS (2)
  1. NEXIUM [Suspect]
     Route: 048
  2. TECTA [Suspect]
     Route: 065

REACTIONS (3)
  - Disease recurrence [Unknown]
  - Hiatus hernia [Unknown]
  - Abdominal discomfort [Unknown]
